FAERS Safety Report 24917283 (Version 3)
Quarter: 2025Q2

REPORT INFORMATION
  Report Type: Spontaneous
  Country: US (occurrence: US)
  Receive Date: 20250203
  Receipt Date: 20250605
  Transmission Date: 20250717
  Serious: Yes (Hospitalization)
  Sender: SANOFI AVENTIS
  Company Number: US-SA-2025SA030734

PATIENT
  Age: 75 Year
  Sex: Female

DRUGS (2)
  1. DUPIXENT [Suspect]
     Active Substance: DUPILUMAB
     Indication: Chronic obstructive pulmonary disease
     Dosage: 300 MG, QOW
     Route: 058
     Dates: start: 202501, end: 202505
  2. DUPIXENT [Suspect]
     Active Substance: DUPILUMAB
     Dates: start: 202505

REACTIONS (8)
  - Dyspnoea exertional [Not Recovered/Not Resolved]
  - Dyspnoea [Recovering/Resolving]
  - Upper respiratory tract infection [Recovering/Resolving]
  - Chronic obstructive pulmonary disease [Unknown]
  - Alopecia [Not Recovered/Not Resolved]
  - Peripheral swelling [Unknown]
  - Joint swelling [Unknown]
  - Vision blurred [Recovering/Resolving]

NARRATIVE: CASE EVENT DATE: 20250101
